FAERS Safety Report 15254915 (Version 1)
Quarter: 2018Q3

REPORT INFORMATION
  Report Type: Spontaneous
  Country: US (occurrence: US)
  Receive Date: 20180808
  Receipt Date: 20180808
  Transmission Date: 20181010
  Serious: No
  Sender: FDA-Public Use
  Company Number: US-TAKEDA-2018TUS024217

PATIENT
  Age: 67 Year
  Sex: Female

DRUGS (7)
  1. 6 MP [Concomitant]
     Active Substance: MERCAPTOPURINE
     Dosage: UNK
     Route: 048
  2. ENTYVIO [Suspect]
     Active Substance: VEDOLIZUMAB
     Indication: COLITIS ULCERATIVE
     Dosage: UNK
     Route: 042
     Dates: start: 201703
  3. ENTYVIO [Suspect]
     Active Substance: VEDOLIZUMAB
     Dosage: UNK UNK, Q4WEEKS
     Route: 042
     Dates: start: 20180604
  4. PANTOPRAZOLE [Concomitant]
     Active Substance: PANTOPRAZOLE
     Dosage: UNK
     Route: 048
  5. CYMBALTA [Concomitant]
     Active Substance: DULOXETINE HYDROCHLORIDE
     Dosage: UNK
     Route: 048
  6. PREDNISONE. [Concomitant]
     Active Substance: PREDNISONE
     Dosage: UNK
     Route: 048
     Dates: start: 201806
  7. ALLOPURINOL. [Concomitant]
     Active Substance: ALLOPURINOL
     Dosage: UNK
     Route: 048

REACTIONS (4)
  - Blood urea increased [Unknown]
  - Blood creatinine increased [Unknown]
  - Colitis ulcerative [Unknown]
  - Off label use [Unknown]

NARRATIVE: CASE EVENT DATE: 20180604
